FAERS Safety Report 22005544 (Version 2)
Quarter: 2023Q1

REPORT INFORMATION
  Report Type: Spontaneous
  Country: BR (occurrence: BR)
  Receive Date: 20230217
  Receipt Date: 20230331
  Transmission Date: 20230418
  Serious: No
  Sender: FDA-Public Use
  Company Number: BR-PFIZER INC-202300061939

PATIENT
  Sex: Female

DRUGS (1)
  1. DEPO-PROVERA [Suspect]
     Active Substance: MEDROXYPROGESTERONE ACETATE
     Indication: Contraception
     Dosage: UNK

REACTIONS (2)
  - Poor quality device used [Unknown]
  - Device mechanical issue [Unknown]
